FAERS Safety Report 8645438 (Version 2)
Quarter: 2012Q4

REPORT INFORMATION
  Report Type: 
  Country: JP (occurrence: JP)
  Receive Date: 20120702
  Receipt Date: 20120921
  Transmission Date: 20130627
  Serious: Yes (Death)
  Sender: FDA-Public Use
  Company Number: JP-ASTRAZENECA-2012SE43398

PATIENT
  Age: 62 Year
  Sex: Female
  Weight: 70 kg

DRUGS (39)
  1. ECARD COMBINATION TABLETS HD [Suspect]
     Indication: HYPERTENSION
     Route: 048
     Dates: start: 20100331
  2. NORVASC OD [Concomitant]
     Indication: HYPERTENSION
     Route: 048
  3. HADODOLIN [Concomitant]
     Indication: GASTRITIS
     Route: 048
  4. ALYSE S [Concomitant]
     Indication: GASTRITIS
     Route: 048
  5. NEBUSN [Concomitant]
     Indication: GASTRITIS
     Route: 048
  6. TEFMETIN [Concomitant]
     Indication: GASTRITIS
     Route: 048
  7. SULPYRINE [Concomitant]
     Indication: GASTRITIS
     Route: 048
  8. PONTAL [Concomitant]
     Indication: GASTRITIS
     Route: 048
  9. CHLORPHENIRAMINE MALEATE [Concomitant]
     Indication: BRONCHITIS CHRONIC
     Route: 048
  10. BROVARIN [Concomitant]
     Indication: GASTRITIS
     Route: 048
  11. CAFFEINE [Concomitant]
     Indication: GASTRITIS
     Route: 048
  12. MAGNESIUM OXIDE [Concomitant]
     Indication: GASTRITIS
     Route: 048
  13. YOUZUREN S [Concomitant]
     Indication: GASTRITIS
     Route: 048
  14. MIGSIS [Concomitant]
     Indication: MIGRAINE
     Route: 048
  15. HYPEN [Concomitant]
     Indication: MIGRAINE
     Route: 048
  16. COBALOKININ [Concomitant]
     Indication: MIGRAINE
     Route: 048
  17. COBANDAXIN [Concomitant]
     Indication: MIGRAINE
     Route: 048
  18. SUZUTOLON [Concomitant]
     Indication: MIGRAINE
     Route: 048
  19. CLEAMINE S [Concomitant]
     Indication: MIGRAINE
     Route: 048
  20. MUCOSTA [Concomitant]
     Indication: GASTRITIS
     Route: 048
  21. WASSER V [Concomitant]
     Indication: STOMATITIS
     Route: 048
     Dates: start: 20020919
  22. ALESION [Concomitant]
     Indication: RHINITIS ALLERGIC
     Route: 048
     Dates: start: 20020221
  23. RANITIDINE [Concomitant]
     Indication: GASTRITIS
     Route: 048
     Dates: start: 2001
  24. LIVALO [Concomitant]
     Indication: DYSLIPIDAEMIA
     Route: 048
     Dates: start: 20040624
  25. CODEINE PHOSPHATE [Concomitant]
     Indication: BRONCHITIS CHRONIC
     Route: 048
  26. METHY F [Concomitant]
     Indication: BRONCHITIS CHRONIC
     Route: 048
  27. BROCIN [Concomitant]
     Indication: BRONCHITIS CHRONIC
     Route: 048
  28. MUCODYNE [Concomitant]
     Indication: BRONCHITIS CHRONIC
     Route: 048
  29. ALIMAN [Concomitant]
     Indication: BRONCHITIS CHRONIC
     Route: 048
  30. PLETASMIN [Concomitant]
     Indication: BRONCHITIS CHRONIC
     Route: 048
  31. CARNACULIN [Concomitant]
     Indication: DIZZINESS
     Route: 048
     Dates: start: 20061127
  32. TSUMURA SHAKUYAKUKANZOUTOU [Concomitant]
     Indication: MUSCLE SPASMS
     Route: 048
     Dates: start: 20080820
  33. MEIACT [Concomitant]
     Indication: PERIODONTITIS
     Route: 048
  34. BIOFERMIN R [Concomitant]
     Indication: PERIODONTITIS
     Route: 048
     Dates: start: 20050330
  35. MOHRUS PUP [Concomitant]
     Indication: BACK PAIN
     Route: 062
     Dates: start: 20080319
  36. AZUNOL GARGLE LIQUID [Concomitant]
     Indication: STOMATITIS
     Route: 049
     Dates: start: 20020905
  37. ZEPELIN [Concomitant]
     Indication: CONJUNCTIVITIS ALLERGIC
     Route: 047
     Dates: start: 20030221
  38. RESTAMIN KOWA [Concomitant]
     Indication: PRURITUS
     Route: 062
     Dates: start: 20040513
  39. LENDORMIN [Concomitant]
     Indication: INSOMNIA
     Route: 048
     Dates: start: 20011011

REACTIONS (2)
  - Sudden death [Fatal]
  - Cardio-respiratory arrest [None]
